FAERS Safety Report 6454645-8 (Version None)
Quarter: 2009Q4

REPORT INFORMATION
  Report Type: 
  Country: None (occurrence: None)
  Receive Date: 20091124
  Receipt Date: 20091118
  Transmission Date: 20100525
  Serious: Yes (Hospitalization)
  Sender: FDA-Public Use
  Company Number: TR-ELI_LILLY_AND_COMPANY-TR200911004864

PATIENT
  Sex: Female

DRUGS (2)
  1. HUMALOG MIX 75/25 [Suspect]
     Indication: TYPE 2 DIABETES MELLITUS
     Dosage: 44 U, EACH MORNING
     Route: 058
     Dates: start: 20090401
  2. HUMALOG MIX 75/25 [Suspect]
     Dosage: 22 U, EACH EVENING
     Route: 058
     Dates: start: 20090401

REACTIONS (1)
  - BLOOD GLUCOSE INCREASED [None]
